FAERS Safety Report 23848024 (Version 1)
Quarter: 2024Q2

REPORT INFORMATION
  Report Type: Spontaneous
  Country: CA (occurrence: CA)
  Receive Date: 20240513
  Receipt Date: 20240513
  Transmission Date: 20240716
  Serious: Yes (Death, Other)
  Sender: FDA-Public Use
  Company Number: CA-PFIZER INC-202400104791

PATIENT
  Sex: Male

DRUGS (3)
  1. NOREPINEPHRINE BITARTRATE [Suspect]
     Active Substance: NOREPINEPHRINE BITARTRATE
     Route: 065
  2. DEXTROSE [Suspect]
     Active Substance: DEXTROSE\DEXTROSE MONOHYDRATE
     Indication: Hypoglycaemia
     Route: 065
  3. DEXTROSE\LACTIC ACID\MAGNESIUM CL\POTASSIUM CL\SODIUM BICARBONATE\SODI [Suspect]
     Active Substance: DEXTROSE\LACTIC ACID\MAGNESIUM CL\POTASSIUM CL\SODIUM BICARBONATE\SODIUM CL
     Indication: Haemofiltration
     Route: 065

REACTIONS (9)
  - Abdominal distension [Fatal]
  - Abdominal pain [Fatal]
  - Acidosis [Fatal]
  - Arrhythmia [Fatal]
  - Death [Fatal]
  - Extrasystoles [Fatal]
  - Hypoglycaemia [Fatal]
  - Hypotension [Fatal]
  - Jaundice [Fatal]
